FAERS Safety Report 17721914 (Version 1)
Quarter: 2020Q2

REPORT INFORMATION
  Report Type: Spontaneous
  Country: US (occurrence: US)
  Receive Date: 20200429
  Receipt Date: 20200429
  Transmission Date: 20200714
  Serious: No
  Sender: FDA-Public Use
  Company Number: US-GW PHARMA-202004USGW01535

PATIENT

DRUGS (1)
  1. EPIDIOLEX [Suspect]
     Active Substance: CANNABIDIOL
     Indication: LENNOX-GASTAUT SYNDROME
     Dosage: 1.5 MG/KG, 50 MILLIGRAM, BID
     Route: 048
     Dates: start: 20191018

REACTIONS (4)
  - Drug ineffective [Unknown]
  - Depression [Unknown]
  - Depressed mood [Unknown]
  - Seizure [Unknown]

NARRATIVE: CASE EVENT DATE: 201910
